FAERS Safety Report 5714977-5 (Version None)
Quarter: 2008Q2

REPORT INFORMATION
  Report Type: 
  Country: None (occurrence: None)
  Receive Date: 20080423
  Receipt Date: 20080421
  Transmission Date: 20081010
  Serious: Yes (Death, Hospitalization)
  Sender: FDA-Public Use
  Company Number: ES-SANOFI-SYNTHELABO-F01200700348

PATIENT
  Sex: Female

DRUGS (8)
  1. MAGNESIUM SULFATE [Concomitant]
     Dosage: UNK
     Route: 065
     Dates: start: 20050418, end: 20050617
  2. CAPECITABINE [Suspect]
     Route: 048
     Dates: start: 20050617, end: 20050617
  3. BEVACIZUMAB [Suspect]
     Route: 042
     Dates: start: 20050617, end: 20050617
  4. DEXAMETHASONE TAB [Concomitant]
     Dosage: UNK
     Route: 065
     Dates: start: 20050318, end: 20050617
  5. ONDANSETRON [Concomitant]
  6. OXALIPLATIN [Suspect]
     Indication: COLORECTAL CANCER METASTATIC
     Route: 042
     Dates: start: 20050617, end: 20050617
  7. CALCIUM GLUBIONATE [Concomitant]
     Dosage: UNK
     Route: 065
     Dates: start: 20050318, end: 20050617
  8. OMEPRAZOLE [Concomitant]
     Dosage: UNK
     Route: 065
     Dates: start: 20050318, end: 20050617

REACTIONS (2)
  - DEATH [None]
  - METASTASES TO LUNG [None]
